FAERS Safety Report 8641228 (Version 3)
Quarter: 2015Q1

REPORT INFORMATION
  Report Type: Spontaneous
  Country: US (occurrence: US)
  Receive Date: 20120628
  Receipt Date: 20150219
  Transmission Date: 20150721
  Serious: Yes (Other)
  Sender: FDA-Public Use
  Company Number: US-ASTRAZENECA-2012SE41462

PATIENT
  Age: 56 Year
  Sex: Female
  Weight: 71.7 kg

DRUGS (7)
  1. CLOPIDIGRIL (PLAVIX) [Concomitant]
     Indication: BLOOD DISORDER
     Route: 048
     Dates: start: 2002
  2. CRESTOR [Suspect]
     Active Substance: ROSUVASTATIN CALCIUM
     Indication: BLOOD CHOLESTEROL INCREASED
     Route: 048
     Dates: end: 20150208
  3. ATENOLOL. [Suspect]
     Active Substance: ATENOLOL
     Indication: CARDIAC DISORDER
     Route: 048
     Dates: start: 1996
  4. AMLODIPINE [Concomitant]
     Active Substance: AMLODIPINE BESYLATE
     Indication: BLOOD PRESSURE ABNORMAL
     Route: 048
  5. CLOPIDIGRIL (PLAVIX) [Concomitant]
     Indication: CEREBROVASCULAR ACCIDENT
     Route: 048
     Dates: start: 2002
  6. NEXIUM [Suspect]
     Active Substance: ESOMEPRAZOLE MAGNESIUM
     Indication: ABDOMINAL DISCOMFORT
     Route: 048
  7. BUMETANIDE. [Concomitant]
     Active Substance: BUMETANIDE
     Indication: ELECTROLYTE IMBALANCE
     Route: 048
     Dates: start: 2014

REACTIONS (6)
  - Off label use [Not Recovered/Not Resolved]
  - Blood cholesterol increased [Unknown]
  - Drug dose omission [Unknown]
  - Cerebrovascular accident [Unknown]
  - Blood potassium decreased [Unknown]
  - Product use issue [Not Recovered/Not Resolved]

NARRATIVE: CASE EVENT DATE: 1996
